FAERS Safety Report 18393426 (Version 1)
Quarter: 2020Q4

REPORT INFORMATION
  Report Type: Spontaneous
  Country: US (occurrence: US)
  Receive Date: 20201016
  Receipt Date: 20201016
  Transmission Date: 20210114
  Serious: No
  Sender: FDA-Public Use
  Company Number: US-BAYER-2020-220670

PATIENT
  Age: 91 Year
  Sex: Female

DRUGS (3)
  1. PRILOSEC [Concomitant]
     Active Substance: OMEPRAZOLE MAGNESIUM
  2. CLARITIN-D 12 HOUR [Suspect]
     Active Substance: LORATADINE\PSEUDOEPHEDRINE SULFATE
     Indication: COUGH
     Dosage: 2 DF, QD
     Route: 048
     Dates: start: 20201008, end: 20201012
  3. CLARITIN [Suspect]
     Active Substance: LORATADINE
     Indication: COUGH
     Dosage: 1 DF, QD
     Route: 048
     Dates: start: 20200914, end: 20201008

REACTIONS (4)
  - Drug ineffective for unapproved indication [Unknown]
  - Off label use [None]
  - Drug ineffective for unapproved indication [Unknown]
  - Constipation [None]

NARRATIVE: CASE EVENT DATE: 20200914
